FAERS Safety Report 25381007 (Version 3)
Quarter: 2025Q4

REPORT INFORMATION
  Report Type: Report from Study
  Country: US (occurrence: US)
  Receive Date: 20250530
  Receipt Date: 20251010
  Transmission Date: 20260118
  Serious: No
  Sender: MALLINCKRODT
  Company Number: US-MALLINCKRODT-MNK202502098

PATIENT
  Age: 66 Year
  Sex: Male
  Weight: 218 kg

DRUGS (2)
  1. CORTICOTROPIN [Suspect]
     Active Substance: CORTICOTROPIN
     Indication: Nephrotic syndrome
     Route: 058
  2. CORTICOTROPIN [Suspect]
     Active Substance: CORTICOTROPIN
     Indication: Nephrotic syndrome

REACTIONS (12)
  - Weight decreased [Unknown]
  - Contusion [Unknown]
  - Intestinal barrier dysfunction [Unknown]
  - Brain fog [Unknown]
  - Memory impairment [Unknown]
  - Muscle spasms [Recovered/Resolved]
  - Gastrooesophageal reflux disease [Unknown]
  - Anxiety [Unknown]
  - Blood glucose increased [Unknown]
  - Injection site pain [Recovering/Resolving]
  - Injection site bruising [Unknown]
  - Product dose omission issue [Unknown]
